FAERS Safety Report 19179054 (Version 3)
Quarter: 2021Q3

REPORT INFORMATION
  Report Type: Spontaneous
  Country: US (occurrence: US)
  Receive Date: 20210426
  Receipt Date: 20210816
  Transmission Date: 20211014
  Serious: No
  Sender: FDA-Public Use
  Company Number: US-SA-2021SA125509

PATIENT
  Age: 70 Year
  Sex: Male
  Weight: 170 kg

DRUGS (25)
  1. XOLAIR [Concomitant]
     Active Substance: OMALIZUMAB
  2. PREDNISONE. [Concomitant]
     Active Substance: PREDNISONE
  3. UREA. [Concomitant]
     Active Substance: UREA
  4. CRANBERRY COMPLEX [Concomitant]
  5. DUPIXENT [Suspect]
     Active Substance: DUPILUMAB
     Indication: RASH
  6. DUPIXENT [Suspect]
     Active Substance: DUPILUMAB
     Indication: PEMPHIGOID
  7. SYNTHROID [Concomitant]
     Active Substance: LEVOTHYROXINE SODIUM
  8. PANTOPRAZOLE [Concomitant]
     Active Substance: PANTOPRAZOLE
  9. VITAMIN D3 [Concomitant]
     Active Substance: CHOLECALCIFEROL
  10. DUPIXENT [Suspect]
     Active Substance: DUPILUMAB
     Indication: SKIN DISORDER
  11. CLOBETASOL PROPIONATE. [Concomitant]
     Active Substance: CLOBETASOL PROPIONATE
  12. ASPIRIN [ACETYLSALICYLIC ACID] [Concomitant]
     Active Substance: ASPIRIN
  13. FOLIC ACID. [Concomitant]
     Active Substance: FOLIC ACID
  14. GLUCOSAMINE + CHONDORITIN [Concomitant]
  15. MULTIVITAMIN [ASCORBIC ACID;CALCIUM PANTOTHENATE;CHROMIUM;COLECALCIFER [Concomitant]
  16. FISH OIL [Concomitant]
     Active Substance: FISH OIL
  17. EPINEPHRINE. [Concomitant]
     Active Substance: EPINEPHRINE
  18. DOXYCYCLINE HYCLATE. [Concomitant]
     Active Substance: DOXYCYCLINE HYCLATE
  19. DUPIXENT [Suspect]
     Active Substance: DUPILUMAB
     Indication: DERMATITIS
     Dosage: 300 MG, QOW (300 MG/2 ML PUFF 300 MG)
     Route: 058
     Dates: start: 202103
  20. XOLAIR [Concomitant]
     Active Substance: OMALIZUMAB
  21. AMLODIPINE BESYLATE. [Concomitant]
     Active Substance: AMLODIPINE BESYLATE
  22. VITAMIN B12 [Concomitant]
     Active Substance: CYANOCOBALAMIN
  23. CABOMETYX [Suspect]
     Active Substance: CABOZANTINIB S-MALATE
     Dosage: UNK
     Dates: start: 202103
  24. VALSARTAN. [Concomitant]
     Active Substance: VALSARTAN
  25. CHEWABLE IRON [Concomitant]

REACTIONS (19)
  - Inflammation [Unknown]
  - Oropharyngeal pain [Unknown]
  - Dry mouth [Unknown]
  - Asthenia [Unknown]
  - Fatigue [Unknown]
  - Oral discomfort [Unknown]
  - Mastication disorder [Unknown]
  - Glossodynia [Unknown]
  - Glossitis [Unknown]
  - Weight decreased [Unknown]
  - Gait disturbance [Recovering/Resolving]
  - Taste disorder [Unknown]
  - Drug ineffective [Unknown]
  - Oral pain [Unknown]
  - Decreased appetite [Unknown]
  - Vomiting [Unknown]
  - Product use in unapproved indication [Unknown]
  - Feeding disorder [Unknown]
  - Nausea [Unknown]

NARRATIVE: CASE EVENT DATE: 202103
